FAERS Safety Report 5223311-9 (Version None)
Quarter: 2007Q1

REPORT INFORMATION
  Report Type: 
  Country: None (occurrence: None)
  Receive Date: 20070124
  Receipt Date: 20070110
  Transmission Date: 20070707
  Serious: Yes (Other)
  Sender: FDA-Public Use
  Company Number: GXKR2007JP00690

PATIENT
  Age: 45 Year
  Sex: Female

DRUGS (8)
  1. ISONIAZID [Suspect]
     Indication: MENINGITIS TUBERCULOUS
     Dosage: ORAL
     Route: 048
     Dates: start: 20060726, end: 20060824
  2. ISONIAZID [Suspect]
     Indication: MENINGITIS TUBERCULOUS
     Dosage: ORAL
     Route: 048
     Dates: start: 20060912
  3. PYRAZINAMIDE [Suspect]
     Indication: MENINGITIS TUBERCULOUS
     Dosage: ORAL
     Route: 048
     Dates: start: 20060726, end: 20060824
  4. PYRAZINAMIDE [Suspect]
     Indication: MENINGITIS TUBERCULOUS
     Dosage: ORAL
     Route: 048
     Dates: start: 20060912
  5. ETHAMBUTOL (NGX)(ETHAMBUTOL) UNKNOWN [Suspect]
     Indication: MENINGITIS TUBERCULOUS
     Dosage: ORAL
     Route: 048
     Dates: start: 20060726, end: 20060824
  6. ETHAMBUTOL (NGX)(ETHAMBUTOL) UNKNOWN [Suspect]
     Indication: MENINGITIS TUBERCULOUS
     Dosage: ORAL
     Route: 048
     Dates: start: 20060912
  7. RIFADIN [Suspect]
     Dosage: ORAL
     Route: 048
     Dates: start: 20040726, end: 20060824
  8. RIFADIN [Suspect]
     Dosage: ORAL
     Route: 048
     Dates: start: 20060912

REACTIONS (8)
  - CONDITION AGGRAVATED [None]
  - DIPLOPIA [None]
  - DRUG ERUPTION [None]
  - DYSARTHRIA [None]
  - MENINGISM [None]
  - PYREXIA [None]
  - RASH GENERALISED [None]
  - TUBERCULOMA OF CENTRAL NERVOUS SYSTEM [None]
